FAERS Safety Report 25825155 (Version 1)
Quarter: 2025Q3

REPORT INFORMATION
  Report Type: Spontaneous
  Country: US (occurrence: US)
  Receive Date: 20250919
  Receipt Date: 20250919
  Transmission Date: 20251021
  Serious: Yes (Disabling, Other)
  Sender: NOVO NORDISK
  Company Number: US-NOVOPROD-1522383

PATIENT
  Sex: Female

DRUGS (1)
  1. TRESIBA [Suspect]
     Active Substance: INSULIN DEGLUDEC
     Indication: Type 2 diabetes mellitus

REACTIONS (6)
  - Disability [Unknown]
  - Intracranial aneurysm [Unknown]
  - Ill-defined disorder [Unknown]
  - Illness [Unknown]
  - Feeling abnormal [Unknown]
  - Blood glucose increased [Unknown]
